FAERS Safety Report 12627398 (Version 1)
Quarter: 2016Q3

REPORT INFORMATION
  Report Type: Report from Study
  Country: US (occurrence: US)
  Receive Date: 20160805
  Receipt Date: 20160805
  Transmission Date: 20161109
  Serious: No
  Sender: FDA-Public Use
  Company Number: US-AMGEN-USASL2016044987

PATIENT
  Age: 66 Year
  Sex: Male

DRUGS (3)
  1. NPLATE [Suspect]
     Active Substance: ROMIPLOSTIM
     Indication: IMMUNE THROMBOCYTOPENIC PURPURA
     Dosage: 2 MUG, Q2WK
     Route: 065
     Dates: start: 20140101
  2. CELLCEPT [Concomitant]
     Active Substance: MYCOPHENOLATE MOFETIL\MYCOPHENOLATE MOFETIL HYDROCHLORIDE
     Dosage: UNK
  3. PREDNISONE. [Concomitant]
     Active Substance: PREDNISONE
     Dosage: UNK
     Dates: start: 1990

REACTIONS (10)
  - Laboratory test abnormal [Unknown]
  - Monocyte count increased [Unknown]
  - Platelet count abnormal [Unknown]
  - Basophil count increased [Unknown]
  - Off label use [Unknown]
  - Myelocyte count increased [Unknown]
  - White blood cell count decreased [Unknown]
  - Mean cell haemoglobin decreased [Unknown]
  - Lymphocyte count decreased [Unknown]
  - Red cell distribution width increased [Unknown]
